FAERS Safety Report 23421640 (Version 1)
Quarter: 2024Q1

REPORT INFORMATION
  Report Type: Spontaneous
  Country: US (occurrence: US)
  Receive Date: 20240119
  Receipt Date: 20240119
  Transmission Date: 20240409
  Serious: Yes (Hospitalization)
  Sender: FDA-Public Use
  Company Number: US-MYLANLABS-2024M1005527

PATIENT
  Age: 35 Year
  Sex: Male

DRUGS (4)
  1. ATENOLOL [Suspect]
     Active Substance: ATENOLOL
     Indication: Tachycardia
     Dosage: UNK
     Route: 065
  2. METHIMAZOLE [Suspect]
     Active Substance: METHIMAZOLE
     Indication: Thyroiditis acute
     Dosage: UNK
     Route: 065
  3. METHIMAZOLE [Suspect]
     Active Substance: METHIMAZOLE
     Indication: Thyroid gland abscess
  4. METHIMAZOLE [Suspect]
     Active Substance: METHIMAZOLE
     Indication: Staphylococcal infection

REACTIONS (2)
  - Drug ineffective for unapproved indication [Unknown]
  - Off label use [Unknown]
